FAERS Safety Report 8922760 (Version 2)
Quarter: 2013Q1

REPORT INFORMATION
  Report Type: Spontaneous
  Country: US (occurrence: None)
  Receive Date: 20121115
  Receipt Date: 20121116
  Transmission Date: 20140127
  Serious: Yes (Hospitalization)
  Sender: FDA-Public Use
  Company Number: JPI-P-026159

PATIENT
  Age: 55 Year
  Sex: Male

DRUGS (3)
  1. XYREM (500 MILLIGRAM/MILLILITERS, SOLUTION) (SODIUM OXYBATE) [Suspect]
     Indication: NARCOLEPSY
     Dosage: 4.5 GM (2.25 GM, 2 IN 1 D), ORAL
     Route: 048
     Dates: start: 20080109
  2. DIAZEPAM [Concomitant]
  3. DOXEPIN HYDROCHLORIDE [Concomitant]

REACTIONS (3)
  - Somnambulism [None]
  - Road traffic accident [None]
  - Memory impairment [None]
